FAERS Safety Report 9361090 (Version 1)
Quarter: 2013Q2

REPORT INFORMATION
  Report Type: Spontaneous
  Country: ES (occurrence: ES)
  Receive Date: 20130621
  Receipt Date: 20130621
  Transmission Date: 20140414
  Serious: No
  Sender: FDA-Public Use
  Company Number: PHHY2013ES043344

PATIENT
  Age: 51 Year
  Sex: Female

DRUGS (3)
  1. TASIGNA [Suspect]
     Indication: CHRONIC MYELOID LEUKAEMIA
     Dosage: 600 MG, DAILY
     Route: 048
     Dates: start: 201201
  2. ATORVASTATIN [Concomitant]
  3. PRAVASTATIN [Concomitant]

REACTIONS (3)
  - Cataract [Not Recovered/Not Resolved]
  - Vision blurred [Not Recovered/Not Resolved]
  - Vitreous disorder [Not Recovered/Not Resolved]
